FAERS Safety Report 6567432-7 (Version None)
Quarter: 2010Q1

REPORT INFORMATION
  Report Type: 
  Country: None (occurrence: None)
  Receive Date: 20100128
  Receipt Date: 20100113
  Transmission Date: 20100710
  Serious: Yes (Hospitalization)
  Sender: FDA-Public Use
  Company Number: 2009AC000289

PATIENT
  Age: 65 Year
  Sex: Female

DRUGS (36)
  1. DIGOXIN [Suspect]
     Dosage: 0.25 MG;QD;PO
     Route: 048
     Dates: start: 19990101
  2. DIGOXIN [Suspect]
     Dosage: 0.125 MG;QD;PO
     Route: 048
     Dates: start: 19980201
  3. DIGOXIN [Suspect]
     Dosage: .25 MG;QD;PO
     Route: 048
     Dates: start: 20071001, end: 20080101
  4. CRESTOR [Concomitant]
  5. METFORMIN HCL [Concomitant]
  6. LASIX [Concomitant]
  7. PRILOSEC [Concomitant]
  8. FLUOXETINE [Concomitant]
  9. TOPROL-XL [Concomitant]
  10. LISINOPRIL [Concomitant]
  11. MIRAPEX [Concomitant]
  12. PLAVIX [Concomitant]
  13. ASPIRIN [Concomitant]
  14. LISINOPRIL [Concomitant]
  15. COUMADIN [Concomitant]
  16. PROZAC [Concomitant]
  17. MIRAPEX [Concomitant]
  18. GLUCOPHAGE [Concomitant]
  19. METOPROLOL TARTRATE [Concomitant]
  20. ZOCOR [Concomitant]
  21. MONOPRIL [Concomitant]
  22. FOLTX [Concomitant]
  23. SPIRIVA [Concomitant]
  24. PREVACID [Concomitant]
  25. FOLIC ACID [Concomitant]
  26. TRAZODONE [Concomitant]
  27. VASOTEC [Concomitant]
  28. WARFARIN SODIUM [Concomitant]
  29. HYTRIN [Concomitant]
  30. CORDARONE [Concomitant]
  31. ATACAND [Concomitant]
  32. ZETIA [Concomitant]
  33. NITROSTAT [Concomitant]
  34. AZITHYROMYCIN [Concomitant]
  35. PREDNISONE [Concomitant]
  36. CHLORTHALID [Concomitant]

REACTIONS (26)
  - ANGINA UNSTABLE [None]
  - ARTERIOSCLEROSIS [None]
  - ASTHENIA [None]
  - ATRIAL FIBRILLATION [None]
  - ATRIAL FLUTTER [None]
  - BREAST PAIN [None]
  - CORONARY ARTERY DISEASE [None]
  - COUGH [None]
  - DIAPHRAGMATIC PARALYSIS [None]
  - DYSPNOEA [None]
  - ECONOMIC PROBLEM [None]
  - EXERCISE TOLERANCE DECREASED [None]
  - FATIGUE [None]
  - HAEMOPTYSIS [None]
  - HYPERHIDROSIS [None]
  - HYPERTENSION [None]
  - ISCHAEMIA [None]
  - ISCHAEMIC CARDIOMYOPATHY [None]
  - MALAISE [None]
  - MULTIPLE INJURIES [None]
  - POST PROCEDURAL COMPLICATION [None]
  - RENAL FAILURE [None]
  - SPLENECTOMY [None]
  - SURGERY [None]
  - UNEVALUABLE EVENT [None]
  - WHEEZING [None]
